FAERS Safety Report 23876230 (Version 11)
Quarter: 2025Q1

REPORT INFORMATION
  Report Type: Report from Study
  Country: CA (occurrence: CA)
  Receive Date: 20240520
  Receipt Date: 20250314
  Transmission Date: 20250409
  Serious: Yes (Hospitalization, Other)
  Sender: JOHNSON AND JOHNSON
  Company Number: CA-JNJFOC-20230865635

PATIENT
  Age: 31 Year
  Sex: Female

DRUGS (5)
  1. SIMPONI [Suspect]
     Active Substance: GOLIMUMAB
     Indication: Ankylosing spondylitis
     Route: 058
  2. SIMPONI [Suspect]
     Active Substance: GOLIMUMAB
     Dosage: FREQUENCY ALSO REPORTED AS (1 IN 30 DAYS)
     Route: 058
     Dates: start: 20211119
  3. SIMPONI [Suspect]
     Active Substance: GOLIMUMAB
     Dosage: RECENT DOSE ON 27-SEP-2024
     Route: 058
  4. DURICEF [Suspect]
     Active Substance: CEFADROXIL
  5. FLUCONAZOLE [Concomitant]
     Active Substance: FLUCONAZOLE
     Dates: start: 20241021

REACTIONS (14)
  - Uterine infection [Recovering/Resolving]
  - Endometritis [Recovering/Resolving]
  - Clostridium difficile infection [Recovering/Resolving]
  - Exposure during pregnancy [Recovered/Resolved]
  - Candida infection [Recovered/Resolved]
  - Mastitis [Recovered/Resolved]
  - Drug hypersensitivity [Unknown]
  - Postoperative wound infection [Unknown]
  - Vaginal infection [Unknown]
  - Sinusitis [Recovering/Resolving]
  - Bronchitis [Unknown]
  - Viral infection [Not Recovered/Not Resolved]
  - Product temperature excursion issue [Unknown]
  - Ear infection [Recovering/Resolving]

NARRATIVE: CASE EVENT DATE: 20230827
